FAERS Safety Report 7353504-6 (Version None)
Quarter: 2011Q1

REPORT INFORMATION
  Report Type: 
  Country: None (occurrence: None)
  Receive Date: 20110307
  Receipt Date: 20100517
  Transmission Date: 20110831
  Serious: No
  Sender: FDA-Public Use
  Company Number: AEUSA201000176

PATIENT
  Age: 53 Year
  Sex: Male
  Weight: 100.2449 kg

DRUGS (7)
  1. SPIRIVA [Concomitant]
  2. ALBUTEROL /00139501/ [Concomitant]
  3. PROLASTIN-C [Suspect]
     Indication: ALPHA-1 ANTI-TRYPSIN DEFICIENCY
     Dosage: ;IV
     Route: 042
     Dates: start: 20100407
  4. WELLBUTRIN /00700502/ [Concomitant]
  5. ADVAIR DISKUS 100/50 [Concomitant]
  6. LASIX [Concomitant]
  7. PROLASTIN [Concomitant]

REACTIONS (2)
  - DYSPNOEA [None]
  - ANXIETY [None]
